FAERS Safety Report 17951733 (Version 2)
Quarter: 2020Q3

REPORT INFORMATION
  Report Type: Report from Study
  Country: DE (occurrence: DE)
  Receive Date: 20200626
  Receipt Date: 20200702
  Transmission Date: 20201103
  Serious: Yes (Hospitalization)
  Sender: FDA-Public Use
  Company Number: DE-JNJFOC-20200627171

PATIENT
  Age: 65 Year
  Sex: Female
  Weight: 69 kg

DRUGS (3)
  1. GEMCITABINE. [Concomitant]
     Active Substance: GEMCITABINE
     Route: 065
  2. STELARA [Suspect]
     Active Substance: USTEKINUMAB
  3. STELARA [Suspect]
     Active Substance: USTEKINUMAB
     Indication: PSORIASIS
     Route: 058
     Dates: start: 20181213, end: 20190627

REACTIONS (5)
  - Subileus [Recovered/Resolved]
  - Escherichia urinary tract infection [Recovering/Resolving]
  - Angiosarcoma metastatic [Recovered/Resolved]
  - Small intestine gangrene [Recovered/Resolved]
  - Colitis [Recovering/Resolving]

NARRATIVE: CASE EVENT DATE: 20200211
